FAERS Safety Report 21047914 (Version 1)
Quarter: 2022Q3

REPORT INFORMATION
  Report Type: Spontaneous
  Country: CN (occurrence: CN)
  Receive Date: 20220706
  Receipt Date: 20220706
  Transmission Date: 20221027
  Serious: Yes (Other)
  Sender: FDA-Public Use
  Company Number: CN-TAKEDA-2022TUS045002

PATIENT
  Age: 61 Year
  Sex: Male
  Weight: 58 kg

DRUGS (6)
  1. NINLARO [Suspect]
     Active Substance: IXAZOMIB CITRATE
     Indication: Plasma cell myeloma recurrent
     Dosage: 40 MILLIGRAM
     Route: 048
     Dates: start: 20220615, end: 20220622
  2. DEXAMETHASONE [Suspect]
     Active Substance: DEXAMETHASONE
     Indication: Plasma cell myeloma recurrent
     Dosage: 20 MILLIGRAM
     Route: 065
     Dates: start: 20220615
  3. DOXORUBICIN [Suspect]
     Active Substance: DOXORUBICIN
     Indication: Plasma cell myeloma recurrent
     Dosage: 20 MILLIGRAM
     Route: 065
     Dates: start: 20220615
  4. DARZALEX [Suspect]
     Active Substance: DARATUMUMAB
     Indication: Plasma cell myeloma recurrent
     Dosage: 400 MILLIGRAM
     Route: 041
  5. DARZALEX [Suspect]
     Active Substance: DARATUMUMAB
     Dosage: 500 MILLIGRAM
     Route: 041
  6. DARZALEX [Suspect]
     Active Substance: DARATUMUMAB
     Dosage: 900 MILLIGRAM
     Route: 041
     Dates: start: 20220615

REACTIONS (3)
  - Myelosuppression [Recovering/Resolving]
  - Platelet count decreased [Unknown]
  - Diarrhoea [Unknown]

NARRATIVE: CASE EVENT DATE: 20220615
